FAERS Safety Report 15222479 (Version 1)
Quarter: 2018Q3

REPORT INFORMATION
  Report Type: Spontaneous
  Country: US (occurrence: US)
  Receive Date: 20180705
  Receipt Date: 20180705
  Transmission Date: 20181010
  Serious: No
  Sender: FDA-Public Use
  Company Number: None

PATIENT
  Age: 68 Year
  Sex: Female

DRUGS (1)
  1. CAPECITABINE TAB 500MG [Suspect]
     Active Substance: CAPECITABINE
     Indication: HEPATOBILIARY CANCER

REACTIONS (4)
  - Hyperkeratosis [None]
  - Urine flow decreased [None]
  - Skin discolouration [None]
  - Peripheral swelling [None]

NARRATIVE: CASE EVENT DATE: 20180705
